FAERS Safety Report 10757739 (Version 1)
Quarter: 2015Q1

REPORT INFORMATION
  Report Type: Spontaneous
  Country: US (occurrence: US)
  Receive Date: 20150203
  Receipt Date: 20150203
  Transmission Date: 20150721
  Serious: No
  Sender: FDA-Public Use
  Company Number: US-009507513-2012SP020754

PATIENT
  Sex: Female
  Weight: 72.56 kg

DRUGS (1)
  1. IMPLANON [Suspect]
     Active Substance: ETONOGESTREL
     Indication: PRODUCT USED FOR UNKNOWN INDICATION
     Dosage: UNK
     Dates: start: 20120418

REACTIONS (5)
  - Menstruation irregular [Unknown]
  - Weight increased [Unknown]
  - Device difficult to use [Not Recovered/Not Resolved]
  - Medical device complication [Not Recovered/Not Resolved]
  - Device deployment issue [Not Recovered/Not Resolved]

NARRATIVE: CASE EVENT DATE: 20120418
